FAERS Safety Report 7967422-3 (Version None)
Quarter: 2011Q4

REPORT INFORMATION
  Report Type: 
  Country: None (occurrence: None)
  Receive Date: 20111209
  Receipt Date: 20111130
  Transmission Date: 20120403
  Serious: No
  Sender: FDA-Public Use
  Company Number: US-JNJFOC-20111201174

PATIENT
  Sex: Female
  Weight: 76.2 kg

DRUGS (6)
  1. DIOVAN [Concomitant]
     Indication: HYPERTENSION
     Route: 048
  2. CLONIDINE [Concomitant]
     Indication: HYPERTENSION
     Route: 048
  3. METOPROLOL TARTRATE [Concomitant]
     Indication: HYPERTENSION
     Route: 048
  4. DURAGESIC-100 [Suspect]
     Indication: SPINAL DISORDER
     Route: 062
     Dates: start: 20110101, end: 20110101
  5. PERCOCET [Concomitant]
     Indication: BREAKTHROUGH PAIN
     Route: 048
  6. DURAGESIC-100 [Suspect]
     Route: 062
     Dates: start: 20110101, end: 20110101

REACTIONS (3)
  - STUPOR [None]
  - DRUG EFFECT INCREASED [None]
  - WRONG TECHNIQUE IN DRUG USAGE PROCESS [None]
